FAERS Safety Report 18279649 (Version 1)
Quarter: 2020Q3

REPORT INFORMATION
  Report Type: Spontaneous
  Country: US (occurrence: US)
  Receive Date: 20200917
  Receipt Date: 20200917
  Transmission Date: 20201103
  Serious: No
  Sender: FDA-Public Use
  Company Number: US-ARBOR PHARMACEUTICALS, LLC-US-2019ARB001423

PATIENT
  Age: 8 Year
  Sex: Male

DRUGS (5)
  1. DEXTROAMPHETAMINE                  /00016601/ [Concomitant]
     Active Substance: DEXTROAMPHETAMINE
     Indication: ATTENTION DEFICIT HYPERACTIVITY DISORDER
     Dosage: UNK
  2. EVEKEO [Suspect]
     Active Substance: AMPHETAMINE SULFATE
     Indication: ATTENTION DEFICIT HYPERACTIVITY DISORDER
     Dosage: UNK
     Dates: start: 201909
  3. GUANFACINE. [Suspect]
     Active Substance: GUANFACINE
     Indication: ATTENTION DEFICIT HYPERACTIVITY DISORDER
  4. EVEKEO [Suspect]
     Active Substance: AMPHETAMINE SULFATE
     Dosage: 2.5 MG, UNK
  5. MIRALAX [Concomitant]
     Active Substance: POLYETHYLENE GLYCOL 3350
     Indication: CONSTIPATION
     Dosage: UNK, QD

REACTIONS (6)
  - Hunger [Unknown]
  - Pruritus [Not Recovered/Not Resolved]
  - Aggression [Unknown]
  - Urinary incontinence [Not Recovered/Not Resolved]
  - Anger [Unknown]
  - Somnolence [Unknown]

NARRATIVE: CASE EVENT DATE: 201909
